FAERS Safety Report 4877492-7 (Version None)
Quarter: 2006Q1

REPORT INFORMATION
  Report Type: 
  Country: None (occurrence: None)
  Receive Date: 20060109
  Receipt Date: 20051226
  Transmission Date: 20060701
  Serious: Yes (Hospitalization, Disabling)
  Sender: FDA-Public Use
  Company Number: 2005162881

PATIENT
  Age: 73 Year
  Sex: Male
  Weight: 48 kg

DRUGS (7)
  1. LIPITOR [Suspect]
     Indication: HYPERCHOLESTEROLAEMIA
     Dosage: 10 MG (10 MG, 1 IN 1 D); ORAL
     Route: 048
     Dates: start: 20051027, end: 20051121
  2. DIOVANCE (VALSARTAN) [Concomitant]
  3. PREDNISOLONE [Concomitant]
  4. RIMATIL (BUCILLAMINE) [Concomitant]
  5. LOXOPROFEN SODIUM [Concomitant]
  6. TIEKAPTO (CIMETIDINE) [Concomitant]
  7. BASEN (VOGLIBOSE) [Concomitant]

REACTIONS (4)
  - ALCOHOLIC LIVER DISEASE [None]
  - DRUG HYPERSENSITIVITY [None]
  - HEPATIC FUNCTION ABNORMAL [None]
  - TREATMENT NONCOMPLIANCE [None]
